FAERS Safety Report 22048205 (Version 1)
Quarter: 2023Q1

REPORT INFORMATION
  Report Type: Spontaneous
  Country: JP (occurrence: JP)
  Receive Date: 20230301
  Receipt Date: 20230301
  Transmission Date: 20230417
  Serious: Yes (Other)
  Sender: FDA-Public Use
  Company Number: JP-ASTELLAS-2023JP002662

PATIENT
  Age: 73 Year
  Sex: Male

DRUGS (5)
  1. PADCEV [Suspect]
     Active Substance: ENFORTUMAB VEDOTIN-EJFV
     Indication: Bladder cancer recurrent
     Dosage: 83 MG (1.25 MG/KG), 1 CYCLE
     Route: 065
  2. TENELIGLIPTIN [Concomitant]
     Active Substance: TENELIGLIPTIN
     Indication: Diabetes mellitus
     Dosage: 20 MG, UNKNOWN FREQ.
     Route: 065
  3. PEMBROLIZUMAB [Concomitant]
     Active Substance: PEMBROLIZUMAB
     Indication: Bladder cancer recurrent
     Dosage: UNK UNK, UNKNOWN FREQ.
     Route: 065
  4. INSULIN GLARGINE [Concomitant]
     Active Substance: INSULIN GLARGINE
     Indication: Hyperglycaemia
     Dosage: UNK UNK, UNKNOWN FREQ.
     Route: 065
  5. INSULIN ASPART [Concomitant]
     Active Substance: INSULIN ASPART
     Indication: Hyperglycaemia
     Dosage: UNK UNK, UNKNOWN FREQ.
     Route: 065

REACTIONS (4)
  - Hyperglycaemia [Recovering/Resolving]
  - Pancytopenia [Unknown]
  - Interstitial lung disease [Unknown]
  - Decreased appetite [Unknown]
